FAERS Safety Report 17482013 (Version 1)
Quarter: 2020Q1

REPORT INFORMATION
  Report Type: Spontaneous
  Country: US (occurrence: US)
  Receive Date: 20200302
  Receipt Date: 20200302
  Transmission Date: 20200409
  Serious: No
  Sender: FDA-Public Use
  Company Number: US-MACLEODS PHARMACEUTICALS US LTD-MAC2020025383

PATIENT

DRUGS (1)
  1. RIZATRIPTAN 10 MG TABLETS [Suspect]
     Active Substance: RIZATRIPTAN BENZOATE
     Indication: MIGRAINE
     Dosage: 10 MILLIGRAM, QD
     Route: 065

REACTIONS (2)
  - Vomiting [Unknown]
  - Drug ineffective [Unknown]
